FAERS Safety Report 5624566-9 (Version None)
Quarter: 2008Q1

REPORT INFORMATION
  Report Type: 
  Country: None (occurrence: None)
  Receive Date: 20080213
  Receipt Date: 20080130
  Transmission Date: 20080703
  Serious: Yes (Hospitalization)
  Sender: FDA-Public Use
  Company Number: JP-AMGEN-US253227

PATIENT
  Sex: Female
  Weight: 53 kg

DRUGS (8)
  1. ENBREL [Suspect]
     Indication: RHEUMATOID ARTHRITIS
     Dosage: BLINDED
     Route: 058
     Dates: start: 20070628, end: 20070920
  2. PREDNISOLONE [Concomitant]
     Indication: RHEUMATOID ARTHRITIS
     Dosage: 5 MG, SID
     Route: 048
     Dates: start: 20070510
  3. TRIAZOLAM [Concomitant]
     Indication: INSOMNIA
     Dosage: 0.25 MG, SID
     Route: 048
  4. LORNOXICAM [Concomitant]
     Indication: RHEUMATOID ARTHRITIS
     Route: 048
     Dates: start: 20070510
  5. DICLOFENAC SODIUM [Concomitant]
     Indication: RHEUMATOID ARTHRITIS
     Dosage: 50 MG, SID
     Route: 054
     Dates: start: 20071112
  6. REBAMIPIDE [Concomitant]
     Indication: GASTRITIS PROPHYLAXIS
     Route: 048
  7. LANSOPRAZOLE [Concomitant]
     Indication: GASTRITIS PROPHYLAXIS
     Dosage: 15 MG, SID
     Route: 048
     Dates: start: 20070510
  8. BENIDIPINE HYDROCHLORIDE [Concomitant]
     Indication: HYPERTENSION
     Dosage: 4 MG, SID
     Route: 048
     Dates: start: 20070510

REACTIONS (3)
  - ATELECTASIS [None]
  - CYST [None]
  - LUNG DISORDER [None]
